FAERS Safety Report 6456554-7 (Version None)
Quarter: 2009Q4

REPORT INFORMATION
  Report Type: 
  Country: None (occurrence: None)
  Receive Date: 20091125
  Receipt Date: 20091113
  Transmission Date: 20100525
  Serious: Yes (Other)
  Sender: FDA-Public Use
  Company Number: US-ASTRAZENECA-2009SE26359

PATIENT
  Age: 584 Month
  Sex: Female

DRUGS (1)
  1. NEXIUM [Suspect]
     Indication: GASTROOESOPHAGEAL REFLUX DISEASE
     Route: 048
     Dates: start: 19990101

REACTIONS (10)
  - ABDOMINAL PAIN UPPER [None]
  - ALOPECIA [None]
  - DEPRESSION [None]
  - DIARRHOEA [None]
  - FLATULENCE [None]
  - HEADACHE [None]
  - HIATUS HERNIA [None]
  - NAUSEA [None]
  - VISION BLURRED [None]
  - WEIGHT DECREASED [None]
